FAERS Safety Report 20164509 (Version 1)
Quarter: 2021Q4

REPORT INFORMATION
  Report Type: Other
  Country: CA (occurrence: CA)
  Receive Date: 20211209
  Receipt Date: 20211209
  Transmission Date: 20220303
  Serious: Yes (Other)
  Sender: FDA-Public Use
  Company Number: CA-APOTEX-2021AP046325

PATIENT
  Age: 78 Year
  Sex: Female
  Weight: 46.7 kg

DRUGS (1)
  1. PREDNISOLONE [Concomitant]
     Active Substance: PREDNISOLONE
     Indication: Product used for unknown indication
     Dosage: UNK
     Route: 065

REACTIONS (2)
  - Tenderness [Recovering/Resolving]
  - Tendon rupture [Recovering/Resolving]
